FAERS Safety Report 14360275 (Version 2)
Quarter: 2018Q3

REPORT INFORMATION
  Report Type: Spontaneous
  Country: FR (occurrence: FR)
  Receive Date: 20180106
  Receipt Date: 20180713
  Transmission Date: 20181010
  Serious: Yes (Hospitalization, Other)
  Sender: FDA-Public Use
  Company Number: FR-AUROBINDO-AUR-APL-2018-001077

PATIENT

DRUGS (1)
  1. PREDNISONE. [Suspect]
     Active Substance: PREDNISONE
     Indication: ANTINUCLEAR ANTIBODY POSITIVE
     Dosage: 0.3 MG/KG, ONCE A DAY
     Route: 065

REACTIONS (6)
  - Guillain-Barre syndrome [Recovering/Resolving]
  - Maternal exposure during pregnancy [Recovering/Resolving]
  - Dysphagia [Recovering/Resolving]
  - Facial paralysis [Recovering/Resolving]
  - Foetal death [Unknown]
  - Cytomegalovirus infection [Recovering/Resolving]
